FAERS Safety Report 8969146 (Version 3)
Quarter: 2013Q2

REPORT INFORMATION
  Report Type: Report from Study
  Country: US (occurrence: US)
  Receive Date: 20121218
  Receipt Date: 20130523
  Transmission Date: 20140414
  Serious: Yes (Other)
  Sender: FDA-Public Use
  Company Number: US-US-EMD SERONO, INC.-7178374

PATIENT
  Age: 22 Year
  Sex: Female

DRUGS (1)
  1. REBIF [Suspect]
     Indication: MULTIPLE SCLEROSIS
     Route: 058
     Dates: start: 20120523

REACTIONS (3)
  - Abortion spontaneous [Recovered/Resolved]
  - Multiple sclerosis [Recovering/Resolving]
  - Maternal exposure timing unspecified [Recovered/Resolved]
